FAERS Safety Report 8492451-3 (Version None)
Quarter: 2012Q3

REPORT INFORMATION
  Report Type: 
  Country: None (occurrence: None)
  Receive Date: 20120706
  Receipt Date: 20120626
  Transmission Date: 20120928
  Serious: Yes (Hospitalization)
  Sender: FDA-Public Use
  Company Number: JP-NAPPMUNDI-MAG-2011-0001425

PATIENT
  Age: 54 Year
  Sex: Male

DRUGS (2)
  1. METHADONE HYDROCHLORIDE [Suspect]
     Indication: PRODUCT USED FOR UNKNOWN INDICATION
     Route: 048
  2. TS-1                               /02422201/ [Concomitant]
     Route: 048

REACTIONS (3)
  - ACUTE ABDOMEN [None]
  - DIARRHOEA [None]
  - CONSTIPATION [None]
